FAERS Safety Report 15441301 (Version 1)
Quarter: 2018Q3

REPORT INFORMATION
  Report Type: Spontaneous
  Country: US (occurrence: US)
  Receive Date: 20180928
  Receipt Date: 20180928
  Transmission Date: 20181010
  Serious: No
  Sender: FDA-Public Use
  Company Number: US-JUBILANT CADISTA PHARMACEUTICALS-2017JUB00442

PATIENT
  Sex: Female

DRUGS (5)
  1. PREDNISONE. [Suspect]
     Active Substance: PREDNISONE
     Dosage: UNK
  2. REMODULIN [Concomitant]
     Active Substance: TREPROSTINIL
     Dosage: 0.043 ?G/KG, UNK
     Route: 058
     Dates: start: 20161104
  3. REMODULIN [Concomitant]
     Active Substance: TREPROSTINIL
     Indication: PULMONARY ARTERIAL HYPERTENSION
     Dosage: 0.038 ?G/KG, UNK
     Route: 058
     Dates: start: 20161025
  4. REMODULIN [Concomitant]
     Active Substance: TREPROSTINIL
     Dosage: 0.0405 UNK, UNK
     Route: 058
     Dates: start: 20161103
  5. REMODULIN [Concomitant]
     Active Substance: TREPROSTINIL
     Dosage: 0.02 ?G/KG, UNK
     Route: 058

REACTIONS (1)
  - Diarrhoea [Unknown]

NARRATIVE: CASE EVENT DATE: 20171212
